FAERS Safety Report 7713667-7 (Version None)
Quarter: 2011Q3

REPORT INFORMATION
  Report Type: 
  Country: None (occurrence: None)
  Receive Date: 20110826
  Receipt Date: 20110810
  Transmission Date: 20111222
  Serious: Yes (Death)
  Sender: FDA-Public Use
  Company Number: JP-ABBOTT-11P-087-0843443-00

PATIENT
  Age: 58 Year
  Sex: Female

DRUGS (9)
  1. TIOTOROPIUM [Concomitant]
     Indication: DIFFUSE PANBRONCHIOLITIS
     Dates: start: 20080901
  2. N-ACETYLCYSTIME [Concomitant]
     Indication: DIFFUSE PANBRONCHIOLITIS
     Route: 055
  3. AZITHROMYCIN [Concomitant]
     Indication: DIFFUSE PANBRONCHIOLITIS
     Dates: start: 20080101
  4. SALMETEROL [Concomitant]
     Indication: DIFFUSE PANBRONCHIOLITIS
     Dates: start: 20080901
  5. PIPERACILLIN AND TAZOBACTAM [Concomitant]
     Indication: DIFFUSE PANBRONCHIOLITIS
  6. ST COMPOUND [Concomitant]
     Indication: PRODUCT USED FOR UNKNOWN INDICATION
     Route: 048
  7. CLARITHROMYCIN [Suspect]
     Indication: DIFFUSE PANBRONCHIOLITIS
     Dates: start: 20061001
  8. MOXIFLOXACIN [Concomitant]
     Indication: DIFFUSE PANBRONCHIOLITIS
     Dates: start: 20080101
  9. ERYTHROCIN LACTOBIONATE [Suspect]
     Indication: DIFFUSE PANBRONCHIOLITIS
     Dates: start: 20051201

REACTIONS (1)
  - DRUG INEFFECTIVE [None]
